FAERS Safety Report 21513841 (Version 1)
Quarter: 2022Q4

REPORT INFORMATION
  Report Type: Other
  Country: AT (occurrence: None)
  Receive Date: 20221027
  Receipt Date: 20221027
  Transmission Date: 20230113
  Serious: Yes (Other)
  Sender: FDA-Public Use
  Company Number: AT-ROCHE-2766000

PATIENT
  Age: 38 Year
  Sex: Female

DRUGS (1)
  1. OCRELIZUMAB [Suspect]
     Active Substance: OCRELIZUMAB
     Indication: Multiple sclerosis
     Route: 042
     Dates: start: 20210204

REACTIONS (4)
  - Anaemia [Not Recovered/Not Resolved]
  - Lymphopenia [Not Recovered/Not Resolved]
  - Headache [Recovered/Resolved]
  - Leukopenia [Unknown]

NARRATIVE: CASE EVENT DATE: 20210204
